FAERS Safety Report 9901147 (Version 1)
Quarter: 2014Q1

REPORT INFORMATION
  Report Type: Spontaneous
  Country: US (occurrence: US)
  Receive Date: 20140217
  Receipt Date: 20140217
  Transmission Date: 20141002
  Serious: No
  Sender: FDA-Public Use
  Company Number: US-PFIZER INC-2014040012

PATIENT
  Age: 60 Year
  Sex: Female
  Weight: 63.49 kg

DRUGS (3)
  1. PREMARIN [Suspect]
     Indication: ATROPHIC VULVOVAGINITIS
     Dosage: DAILY FOR FIRST WEEK AND TWO TIMES IN A WEEK FROM SECOND WEEK
     Route: 067
     Dates: start: 201401
  2. COZAAR [Concomitant]
     Indication: HYPERTENSION
     Dosage: UNK
  3. ALBUTEROL [Concomitant]
     Indication: ASTHMA
     Dosage: UNK

REACTIONS (2)
  - Abdominal distension [Unknown]
  - Fluid retention [Unknown]
